FAERS Safety Report 21897273 (Version 1)
Quarter: 2023Q1

REPORT INFORMATION
  Report Type: Spontaneous
  Country: US (occurrence: US)
  Receive Date: 20230123
  Receipt Date: 20230123
  Transmission Date: 20230418
  Serious: Yes (Death, Life-Threatening, Hospitalization, Other)
  Sender: FDA-Public Use
  Company Number: US-MLMSERVICE-20221228-4007210-1

PATIENT
  Age: 37 Year
  Sex: Male
  Weight: 41 kg

DRUGS (20)
  1. LIDOCAINE [Suspect]
     Active Substance: LIDOCAINE
     Indication: Dental local anaesthesia
     Dosage: 72 MILLIGRAM (TOTAL) 3.6 ML
     Route: 004
  2. MIDAZOLAM [Suspect]
     Active Substance: MIDAZOLAM
     Indication: Sedation
     Dosage: 1 MILLIGRAM (FIRST DOSE)
     Route: 042
  3. MIDAZOLAM [Suspect]
     Active Substance: MIDAZOLAM
     Dosage: 1 MILLIGRAM (FINAL) TOTAL
     Route: 042
  4. MIDAZOLAM [Suspect]
     Active Substance: MIDAZOLAM
     Dosage: 1 MILLIGRAM 915 MINUTES AFTER THE FIRST DOSE) TOTAL
     Route: 042
  5. PROPOFOL [Suspect]
     Active Substance: PROPOFOL
     Indication: Product used for unknown indication
     Dosage: UNK (SMALL DOSES)
     Route: 065
  6. PROPOFOL [Suspect]
     Active Substance: PROPOFOL
     Dosage: 50 MILLIGRAM
     Route: 065
  7. PROPOFOL [Suspect]
     Active Substance: PROPOFOL
     Dosage: 80 MILLIGRAM
     Route: 065
  8. SUCCINYLCHOLINE [Suspect]
     Active Substance: SUCCINYLCHOLINE
     Indication: Product used for unknown indication
     Dosage: 80 MILLIGRAM
     Route: 065
  9. EPINEPHRINE [Suspect]
     Active Substance: EPINEPHRINE
     Indication: Dental local anaesthesia
     Dosage: 18 MICROGRAM (1:100000, ADMINISTERED TO TEETH NOS. 17 AND 18 VIA BUCCAL INFILTRATION AND PERIODONTAL
     Route: 004
  10. EPINEPHRINE [Suspect]
     Active Substance: EPINEPHRINE
     Indication: Dental local anaesthesia
     Dosage: 36 MICROGRAM (1:100000, APPROXIMATELY 45 MINUTES AFTER THE PREVIOUS MANDIBULAR INJECTIONS)
     Route: 004
  11. EPINEPHRINE [Suspect]
     Active Substance: EPINEPHRINE
     Dosage: 18 MICROGRAM (1:100000, VIA BUCCAL AND LINGUAL INFILTRATION AROUND TEETH NOS. 29 TO 32)
     Route: 004
  12. EPINEPHRINE [Suspect]
     Active Substance: EPINEPHRINE
     Dosage: 36 MICROGRAM (1:100000, BILATERAL BUCCAL AND PALATAL INFILTRATION OF THE MAXILLARY MOLARS)
     Route: 004
  13. ARTICAINE [Suspect]
     Active Substance: ARTICAINE
     Indication: Dental local anaesthesia
     Dosage: 72 MILLIGRAM (1.8 ML, BUCCAL AND LINGUAL INFILTRATION AROUND TEETH NOS. 29 TO 32)
     Route: 004
  14. ARTICAINE [Suspect]
     Active Substance: ARTICAINE
     Dosage: 72 MILLIGRAM (1.8 ML, ADMINISTERED TO TEETH NOS. 17 AND 18 VIA BUCCAL INFILTRATION AND PERIODONTAL L
     Route: 004
  15. ARTICAINE [Suspect]
     Active Substance: ARTICAINE
     Dosage: 144 MILLIGRAM (3.6 ML, BILATERAL BUCCAL AND PALATAL INFILTRATION OF THE MAXILLARY MOLARS)
     Route: 004
  16. SODIUM CHLORIDE [Concomitant]
     Active Substance: SODIUM CHLORIDE
     Indication: Product used for unknown indication
     Dosage: 200 MILLILITER
     Route: 042
  17. DENTA 5000 PLUS [Concomitant]
     Active Substance: SODIUM FLUORIDE
     Indication: Product used for unknown indication
     Dosage: UNK
     Route: 065
  18. OXYGEN [Concomitant]
     Active Substance: OXYGEN
     Indication: Oxygen therapy
     Dosage: 3 LITER
     Route: 045
  19. SENNA LEAF [Concomitant]
     Active Substance: SENNA LEAF
     Indication: Product used for unknown indication
     Dosage: UNK
     Route: 065
  20. DOCUSATE [Concomitant]
     Active Substance: DOCUSATE
     Indication: Product used for unknown indication
     Dosage: UNK
     Route: 065

REACTIONS (15)
  - Fall [Fatal]
  - Craniocerebral injury [Fatal]
  - Condition aggravated [Unknown]
  - Pneumothorax [Unknown]
  - Overdose [Unknown]
  - Drug clearance decreased [Recovering/Resolving]
  - Myotonic dystrophy [Unknown]
  - Electrocardiogram ST segment elevation [Recovered/Resolved]
  - Pneumonitis aspiration [Unknown]
  - Pneumonia [Unknown]
  - Hypersomnia [Unknown]
  - Hyporesponsive to stimuli [Recovering/Resolving]
  - Arrhythmia [Unknown]
  - Hypoxia [Unknown]
  - Cardiac arrest [Recovered/Resolved]
